FAERS Safety Report 5877778-3 (Version None)
Quarter: 2008Q3

REPORT INFORMATION
  Report Type: 
  Country: None (occurrence: None)
  Receive Date: 20080911
  Receipt Date: 20080903
  Transmission Date: 20090109
  Serious: Yes (Other)
  Sender: FDA-Public Use
  Company Number: BR-BAYER-200817908LA

PATIENT
  Age: 26 Year
  Sex: Female
  Weight: 98 kg

DRUGS (1)
  1. AVELOX [Suspect]
     Indication: TONSILLITIS
     Dosage: TOTAL DAILY DOSE: 400 MG  UNIT DOSE: 400 MG
     Route: 048
     Dates: start: 20080901, end: 20080903

REACTIONS (6)
  - DYSPNOEA [None]
  - EYELID OEDEMA [None]
  - FACE OEDEMA [None]
  - HAEMATEMESIS [None]
  - HYPERSENSITIVITY [None]
  - URTICARIA [None]
